FAERS Safety Report 17470105 (Version 9)
Quarter: 2020Q2

REPORT INFORMATION
  Report Type: Report from Study
  Country: HU (occurrence: HU)
  Receive Date: 20200227
  Receipt Date: 20200421
  Transmission Date: 20200713
  Serious: Yes (Hospitalization)
  Sender: FDA-Public Use
  Company Number: HU-EISAI MEDICAL RESEARCH-EC-2020-070902

PATIENT
  Age: 77 Year
  Sex: Male
  Weight: 81 kg

DRUGS (28)
  1. FINPROS [Concomitant]
     Active Substance: FINASTERIDE
     Dates: start: 201101
  2. RETAFYLLIN [Concomitant]
     Active Substance: THEOPHYLLINE
     Dates: start: 199401
  3. RENITEC [Concomitant]
     Dates: start: 199401
  4. ELOCOM [Concomitant]
     Active Substance: MOMETASONE FUROATE
     Dates: start: 20191128, end: 20200128
  5. DIASIP [Concomitant]
     Dates: start: 20200129
  6. MILURIT [Concomitant]
     Active Substance: ALLOPURINOL
     Dates: start: 200401
  7. MOFUDER [Concomitant]
     Active Substance: MOMETASONE FUROATE
     Dates: start: 20200129
  8. LENVATINIB [Suspect]
     Active Substance: LENVATINIB
     Dosage: DOSE REDUCED
     Route: 048
     Dates: start: 20200210
  9. PEMBROLIZUMAB. [Suspect]
     Active Substance: PEMBROLIZUMAB
     Route: 041
     Dates: start: 20200120, end: 20200120
  10. PEMBROLIZUMAB. [Suspect]
     Active Substance: PEMBROLIZUMAB
     Route: 041
     Dates: start: 20200304
  11. PANTOPRAZOLE [Concomitant]
     Active Substance: PANTOPRAZOLE
     Dates: start: 201601
  12. MEGYRINA [Concomitant]
     Dates: start: 20200129
  13. LENVATINIB [Suspect]
     Active Substance: LENVATINIB
     Indication: NON-SMALL CELL LUNG CANCER METASTATIC
     Route: 048
     Dates: start: 20191107, end: 20200209
  14. SINCUMAR [Concomitant]
     Dates: start: 201401, end: 20200228
  15. PEMBROLIZUMAB. [Suspect]
     Active Substance: PEMBROLIZUMAB
     Indication: NON-SMALL CELL LUNG CANCER METASTATIC
     Route: 041
     Dates: start: 20191107, end: 20191223
  16. KALDYUM [Concomitant]
     Active Substance: POTASSIUM CHLORIDE
     Dates: start: 201401
  17. BISOPROLOL [Concomitant]
     Active Substance: BISOPROLOL
     Dates: start: 201401
  18. HUMALOG MIX [Concomitant]
     Active Substance: INSULIN LISPRO
     Dates: start: 201501
  19. FUROSEMIDE. [Concomitant]
     Active Substance: FUROSEMIDE
     Dates: start: 201401
  20. TAMSUDIL [Concomitant]
     Active Substance: TAMSULOSIN HYDROCHLORIDE
     Dates: start: 201101
  21. LORDESTIN [Concomitant]
     Dates: start: 20200129
  22. PROPRANOLOL [Concomitant]
     Active Substance: PROPRANOLOL HYDROCHLORIDE
     Dates: start: 20200113
  23. METOTHYRIN [Concomitant]
     Dates: start: 20200120
  24. CORDARONE [Concomitant]
     Active Substance: AMIODARONE HYDROCHLORIDE
     Dates: start: 200401
  25. ATORVASTATIN [Concomitant]
     Active Substance: ATORVASTATIN
     Dates: start: 200401
  26. CO-ENALAPRIL [Concomitant]
     Active Substance: ENALAPRIL MALEATE\HYDROCHLOROTHIAZIDE
     Dates: start: 199401
  27. NOOTROPIL [Concomitant]
     Active Substance: PIRACETAM
     Dates: start: 201401
  28. IMODIUM [Concomitant]
     Active Substance: LOPERAMIDE HYDROCHLORIDE
     Dates: start: 20200113

REACTIONS (1)
  - Fatigue [Not Recovered/Not Resolved]

NARRATIVE: CASE EVENT DATE: 20200131
